FAERS Safety Report 7530922-4 (Version None)
Quarter: 2011Q2

REPORT INFORMATION
  Report Type: 
  Country: None (occurrence: None)
  Receive Date: 20110608
  Receipt Date: 20110523
  Transmission Date: 20111010
  Serious: Yes (Hospitalization)
  Sender: FDA-Public Use
  Company Number: FR-CELGENEUS-056-C5013-11041301

PATIENT
  Sex: Male
  Weight: 50 kg

DRUGS (33)
  1. THALIDOMIDE [Suspect]
     Indication: MULTIPLE MYELOMA
     Dosage: 100 MILLIGRAM
     Route: 048
     Dates: start: 20100419
  2. LASIX [Concomitant]
     Indication: OEDEMA
     Dosage: 500 MILLIGRAM
     Route: 048
     Dates: start: 20110330
  3. BIPRETERAX [Concomitant]
     Dosage: 5 MILLIGRAM
     Route: 048
     Dates: start: 20070901
  4. ICAZ [Concomitant]
     Dosage: 5 MILLIGRAM
     Route: 048
     Dates: start: 20070901
  5. NICARDIPINE HCL [Concomitant]
     Indication: HYPERTENSION
     Dosage: 100 MILLIGRAM
     Route: 048
     Dates: start: 20110416
  6. TRANSIPEG [Concomitant]
     Indication: CONSTIPATION PROPHYLAXIS
     Dosage: 11.8 GRAM
     Route: 048
     Dates: start: 20100625
  7. EQUANIL [Concomitant]
     Dosage: 1200 MILLIGRAM
     Route: 048
     Dates: start: 20110409, end: 20110414
  8. BISTERAX [Concomitant]
     Indication: HYPERTENSION
     Dosage: 5 MILLIGRAM
     Route: 048
     Dates: start: 20110410, end: 20110414
  9. ACETAMINOPHEN [Concomitant]
     Indication: PAIN
     Dosage: 1 GRAM
     Route: 048
     Dates: start: 20110420, end: 20110420
  10. VALACYCLOVIR HYDROCHLORIDE [Concomitant]
     Indication: PROPHYLAXIS
     Dosage: 500 MILLIGRAM
     Route: 048
     Dates: start: 20110424, end: 20110424
  11. THALIDOMIDE [Suspect]
     Dosage: 100 MILLIGRAM
     Route: 048
     Dates: start: 20110321, end: 20110408
  12. PREDNISONE [Suspect]
     Indication: MULTIPLE MYELOMA
     Dosage: 125 MILLIGRAM
     Route: 065
     Dates: start: 20100419
  13. VALIUM [Concomitant]
     Route: 048
     Dates: start: 20110416, end: 20110422
  14. DURAGESIC-100 [Concomitant]
     Indication: PAIN
     Route: 048
     Dates: start: 20110410, end: 20110519
  15. VALIUM [Concomitant]
     Indication: ANXIETY
     Dosage: 30 MILLIGRAM
     Route: 048
     Dates: start: 20100701
  16. EQUANIL [Concomitant]
     Dosage: 1200 MILLIGRAM
     Route: 048
     Dates: start: 20110418
  17. MELPHALAN HYDROCHLORIDE [Suspect]
     Dosage: 6 MILLIGRAM
     Route: 065
     Dates: start: 20110321, end: 20110324
  18. PREDNISONE [Suspect]
     Dosage: 220 MILLIGRAM
     Route: 065
     Dates: start: 20110324, end: 20110324
  19. COUMADIN [Concomitant]
     Dosage: 5 MILLIGRAM
     Route: 048
     Dates: start: 20100628, end: 20110408
  20. FOLIC ACID [Concomitant]
     Indication: FOLATE DEFICIENCY
     Dosage: 10 MILLIGRAM
     Route: 048
     Dates: start: 20100625
  21. VITAMIN K TAB [Concomitant]
     Indication: OVERDOSE
     Route: 048
     Dates: start: 20110408
  22. VALIUM [Concomitant]
     Route: 048
     Dates: start: 20110423
  23. LEXOMYL [Concomitant]
     Indication: ANXIETY
     Dosage: 1.5 MILLIGRAM
     Route: 048
     Dates: start: 20110415
  24. OXYCONTIN [Concomitant]
     Indication: PAIN
     Dosage: 400 MILLIGRAM
     Route: 048
     Dates: start: 20110426, end: 20110426
  25. MELPHALAN HYDROCHLORIDE [Suspect]
     Indication: MULTIPLE MYELOMA
     Dosage: 10 MILLIGRAM
     Route: 065
     Dates: start: 20100419
  26. PREDNISONE [Suspect]
     Dosage: 110 MILLIGRAM
     Route: 065
     Dates: start: 20110321, end: 20110323
  27. MORPHINE SULFATE [Concomitant]
     Indication: BONE PAIN
     Route: 048
     Dates: start: 20100625
  28. PARKINANE [Concomitant]
     Dosage: 2 MILLIGRAM
     Route: 048
     Dates: start: 20100704
  29. EQUANIL [Concomitant]
     Indication: ANXIETY
     Dosage: 400 MILLIGRAM
     Route: 048
     Dates: start: 20100625, end: 20110408
  30. LASIX [Concomitant]
     Dosage: 20 MILLIGRAM
     Route: 048
     Dates: start: 20110426, end: 20110427
  31. EUPANTHOL [Concomitant]
     Indication: GASTRITIS PROPHYLAXIS
     Dosage: 20 MILLIGRAM
     Route: 048
     Dates: start: 20110410
  32. NEXIUM [Concomitant]
     Dosage: 20 MILLIGRAM
     Route: 048
     Dates: start: 20110416
  33. BACTRIM [Concomitant]
     Dosage: 342.8571 MILLIGRAM
     Route: 048
     Dates: start: 20100321, end: 20110408

REACTIONS (2)
  - AUTONOMIC NERVOUS SYSTEM IMBALANCE [None]
  - IDIOPATHIC THROMBOCYTOPENIC PURPURA [None]
